FAERS Safety Report 18380217 (Version 1)
Quarter: 2020Q4

REPORT INFORMATION
  Report Type: Spontaneous
  Country: US (occurrence: US)
  Receive Date: 20201013
  Receipt Date: 20201013
  Transmission Date: 20210114
  Serious: No
  Sender: FDA-Public Use
  Company Number: US-AERIE-2020-001622

PATIENT
  Age: 76 Year
  Sex: Male

DRUGS (1)
  1. RHOPRESSA [Suspect]
     Active Substance: NETARSUDIL MESYLATE
     Indication: PRODUCT USED FOR UNKNOWN INDICATION
     Dosage: UNK
     Route: 047
     Dates: end: 20200428

REACTIONS (3)
  - Serous retinal detachment [Recovered/Resolved]
  - Vitreous disorder [Recovered/Resolved]
  - Cystoid macular oedema [Recovered/Resolved]
